FAERS Safety Report 4851635-3 (Version None)
Quarter: 2005Q4

REPORT INFORMATION
  Report Type: 
  Country: None (occurrence: None)
  Receive Date: 20051212
  Receipt Date: 20051206
  Transmission Date: 20060501
  Serious: Yes (Hospitalization)
  Sender: FDA-Public Use
  Company Number: CA-MERCK-0512CAN00025

PATIENT
  Age: 72 Year
  Sex: Female

DRUGS (3)
  1. ZETIA [Suspect]
     Indication: BLOOD CHOLESTEROL INCREASED
     Route: 048
     Dates: start: 20050101
  2. ATORVASTATIN CALCIUM [Concomitant]
     Route: 065
  3. ASPIRIN [Concomitant]
     Route: 065

REACTIONS (1)
  - COLITIS ISCHAEMIC [None]
